FAERS Safety Report 8431988-X (Version None)
Quarter: 2012Q2

REPORT INFORMATION
  Report Type: 
  Country: None (occurrence: None)
  Receive Date: 20120613
  Receipt Date: 20110706
  Transmission Date: 20120825
  Serious: No
  Sender: FDA-Public Use
  Company Number: US-ASTRAZENECA-2011SE40457

PATIENT
  Age: 32 Year
  Sex: Male
  Weight: 104.3 kg

DRUGS (2)
  1. OMNARIS [Suspect]
     Indication: SEASONAL ALLERGY
     Route: 045
     Dates: start: 20110105
  2. RHINOCORT [Suspect]
     Route: 045
     Dates: start: 20110105

REACTIONS (3)
  - EPISTAXIS [None]
  - SEASONAL ALLERGY [None]
  - UPPER-AIRWAY COUGH SYNDROME [None]
